FAERS Safety Report 8233680-3 (Version None)
Quarter: 2012Q1

REPORT INFORMATION
  Report Type: 
  Country: None (occurrence: None)
  Receive Date: 20120326
  Receipt Date: 20120321
  Transmission Date: 20120608
  Serious: Yes (Death)
  Sender: FDA-Public Use
  Company Number: PHHY2012FR025306

PATIENT
  Sex: Male

DRUGS (5)
  1. BISOPROLOL FUMARATE [Concomitant]
     Dosage: 10 MG, UNK
  2. BECLOMETASONE DIPROPIONATE W/FORMOTEROL FUMARATE [Concomitant]
  3. PRAVASTATIN [Concomitant]
  4. ONBREZ [Suspect]
     Indication: CHRONIC OBSTRUCTIVE PULMONARY DISEASE
     Dosage: 150 UG, DAY
     Dates: start: 20120201
  5. AMINOPHYLLINE [Concomitant]

REACTIONS (1)
  - DEATH [None]
